FAERS Safety Report 13085475 (Version 1)
Quarter: 2017Q1

REPORT INFORMATION
  Report Type: Spontaneous
  Country: US (occurrence: US)
  Receive Date: 20170104
  Receipt Date: 20170104
  Transmission Date: 20170428
  Serious: No
  Sender: FDA-Public Use
  Company Number: US-PFIZER INC-2016600837

PATIENT
  Age: 71 Year
  Sex: Male

DRUGS (6)
  1. IODINE. [Suspect]
     Active Substance: IODINE
     Dosage: UNK
  2. NORCO [Suspect]
     Active Substance: ACETAMINOPHEN\HYDROCODONE BITARTRATE
     Dosage: UNK
  3. LIPITOR [Suspect]
     Active Substance: ATORVASTATIN CALCIUM
     Dosage: UNK
  4. ASA [Suspect]
     Active Substance: ASPIRIN
     Dosage: UNK
  5. COREG [Suspect]
     Active Substance: CARVEDILOL
     Dosage: UNK
  6. LOSARTAN. [Suspect]
     Active Substance: LOSARTAN
     Dosage: UNK

REACTIONS (1)
  - Drug hypersensitivity [Unknown]
